FAERS Safety Report 13039983 (Version 2)
Quarter: 2017Q1

REPORT INFORMATION
  Report Type: Spontaneous
  Country: IT (occurrence: IT)
  Receive Date: 20161219
  Receipt Date: 20170302
  Transmission Date: 20170428
  Serious: Yes (Other)
  Sender: FDA-Public Use
  Company Number: IT-TEVA-720227ACC

PATIENT
  Age: 91 Year
  Sex: Female

DRUGS (8)
  1. ALMARYTM - MEDA PHARMA S.P.A. [Suspect]
     Active Substance: FLECAINIDE ACETATE
     Indication: PRODUCT USED FOR UNKNOWN INDICATION
  2. HALCION [Suspect]
     Active Substance: TRIAZOLAM
     Indication: PRODUCT USED FOR UNKNOWN INDICATION
  3. ARLEVERTAN - HENNIG ARZNEIMITTEL GMBH AND C0. KG [Suspect]
     Active Substance: CINNARIZINE\DIMENHYDRINATE
     Indication: PRODUCT USED FOR UNKNOWN INDICATION
  4. CLOPIXOL - LUNDBECK ITALIA S.P.A. [Suspect]
     Active Substance: ZUCLOPENTHIXOL HYDROCHLORIDE
     Indication: PRODUCT USED FOR UNKNOWN INDICATION
  5. VASORETIC - MERCK SHARP AND DOHME LIMITED [Suspect]
     Active Substance: ENALAPRIL MALEATE\HYDROCHLOROTHIAZIDE
     Indication: PRODUCT USED FOR UNKNOWN INDICATION
  6. SIMVASTATIN. [Suspect]
     Active Substance: SIMVASTATIN
     Indication: PRODUCT USED FOR UNKNOWN INDICATION
     Route: 065
  7. CARDIOASPIRIN - BAYER S.P.A. [Suspect]
     Active Substance: ASPIRIN
     Indication: PRODUCT USED FOR UNKNOWN INDICATION
  8. TAPAZOLE [Suspect]
     Active Substance: METHIMAZOLE
     Indication: PRODUCT USED FOR UNKNOWN INDICATION

REACTIONS (2)
  - Syncope [Unknown]
  - Bradycardia [Unknown]

NARRATIVE: CASE EVENT DATE: 20160307
